FAERS Safety Report 6686858-4 (Version None)
Quarter: 2010Q2

REPORT INFORMATION
  Report Type: 
  Country: None (occurrence: None)
  Receive Date: 20100419
  Receipt Date: 20100414
  Transmission Date: 20101027
  Serious: Yes (Other)
  Sender: FDA-Public Use
  Company Number: US-BRISTOL-MYERS SQUIBB COMPANY-15063902

PATIENT
  Sex: Male

DRUGS (13)
  1. LISINOPRIL [Suspect]
  2. METFORMIN HCL [Suspect]
  3. FENOFIBRATE [Suspect]
  4. PLAVIX [Suspect]
  5. GABAPENTIN [Suspect]
  6. COLACE [Suspect]
  7. CRESTOR [Suspect]
  8. FAMOTIDINE [Suspect]
  9. OMEPRAZOLE [Suspect]
  10. INSULIN [Suspect]
  11. TOPAMAX [Suspect]
  12. HYDROCHLOROTHIAZIDE [Suspect]
  13. ASPIRIN [Suspect]

REACTIONS (7)
  - CARDIAC DISORDER [None]
  - DIABETES MELLITUS [None]
  - DIABETIC NEUROPATHY [None]
  - HYPERTENSION [None]
  - NEPHROLITHIASIS [None]
  - OBESITY [None]
  - THYROID DISORDER [None]
